FAERS Safety Report 19685445 (Version 1)
Quarter: 2021Q3

REPORT INFORMATION
  Report Type: Spontaneous
  Country: US (occurrence: US)
  Receive Date: 20210811
  Receipt Date: 20210811
  Transmission Date: 20211014
  Serious: Yes (Disabling, Other)
  Sender: FDA-Public Use
  Company Number: None

PATIENT
  Age: 68 Year
  Sex: Female
  Weight: 99.9 kg

DRUGS (13)
  1. SYNTHROID [Concomitant]
     Active Substance: LEVOTHYROXINE SODIUM
  2. KEYTRUDA [Concomitant]
     Active Substance: PEMBROLIZUMAB
  3. MULTI VIT [Concomitant]
     Active Substance: VITAMINS
  4. IC CARBAMAZEPINE ER 200 MG TABLET [Suspect]
     Active Substance: CARBAMAZEPINE
     Indication: MIGRAINE
     Dosage: ?          QUANTITY:1 TABLET(S);?
     Route: 048
     Dates: start: 20210714, end: 20210805
  5. CRESTOR [Concomitant]
     Active Substance: ROSUVASTATIN CALCIUM
  6. VITAMIN D [Concomitant]
     Active Substance: VITAMIN D NOS
  7. FLONASE [Concomitant]
     Active Substance: FLUTICASONE PROPIONATE
  8. IRBESARTAN. [Concomitant]
     Active Substance: IRBESARTAN
  9. IC CARBAMAZEPINE ER 200 MG TABLET [Suspect]
     Active Substance: CARBAMAZEPINE
     Indication: BIPOLAR DISORDER
     Dosage: ?          QUANTITY:1 TABLET(S);?
     Route: 048
     Dates: start: 20210714, end: 20210805
  10. ALLEGRA [Concomitant]
     Active Substance: FEXOFENADINE HYDROCHLORIDE
  11. VIT B 12 [Concomitant]
     Active Substance: CYANOCOBALAMIN
  12. COENZYME Q10 [Concomitant]
     Active Substance: DIETARY SUPPLEMENT\UBIDECARENONE
  13. FAMITODINE [Concomitant]

REACTIONS (2)
  - Optic ischaemic neuropathy [None]
  - Headache [None]

NARRATIVE: CASE EVENT DATE: 20210717
